FAERS Safety Report 26215713 (Version 1)
Quarter: 2025Q4

REPORT INFORMATION
  Report Type: Spontaneous
  Country: EU (occurrence: EU)
  Receive Date: 20251231
  Receipt Date: 20251231
  Transmission Date: 20260118
  Serious: Yes (Other)
  Sender: BEIGENE
  Company Number: EU-BEONEMEDICINES-BGN-2025-023837

PATIENT
  Age: 50 Year
  Sex: Male

DRUGS (4)
  1. BRUKINSA [Suspect]
     Active Substance: ZANUBRUTINIB
     Indication: Mantle cell lymphoma
     Dosage: UNK
  2. BRUKINSA [Suspect]
     Active Substance: ZANUBRUTINIB
     Indication: Metastases to central nervous system
  3. BREXUCABTAGENE AUTOLEUCEL [Suspect]
     Active Substance: BREXUCABTAGENE AUTOLEUCEL
     Indication: Mantle cell lymphoma
     Dosage: UNK
  4. BREXUCABTAGENE AUTOLEUCEL [Suspect]
     Active Substance: BREXUCABTAGENE AUTOLEUCEL
     Indication: Metastases to central nervous system

REACTIONS (1)
  - Cytokine release syndrome [Recovered/Resolved]
